FAERS Safety Report 17076314 (Version 1)
Quarter: 2019Q4

REPORT INFORMATION
  Report Type: Spontaneous
  Country: FR (occurrence: FR)
  Receive Date: 20191126
  Receipt Date: 20191126
  Transmission Date: 20200122
  Serious: Yes (Other)
  Sender: FDA-Public Use
  Company Number: FR-MYLANLABS-2019M1114022

PATIENT
  Age: 52 Year
  Sex: Male
  Weight: 119.25 kg

DRUGS (1)
  1. VANCOMYCIN MYLAN 1 G [Suspect]
     Active Substance: VANCOMYCIN HYDROCHLORIDE
     Indication: DEVICE RELATED INFECTION
     Dosage: 1 GRAM
     Route: 040
     Dates: start: 20190918, end: 20190918

REACTIONS (1)
  - Lymphangitis [Recovering/Resolving]

NARRATIVE: CASE EVENT DATE: 20190918
